FAERS Safety Report 6851227-0 (Version None)
Quarter: 2010Q3

REPORT INFORMATION
  Report Type: 
  Country: None (occurrence: None)
  Receive Date: 20100716
  Receipt Date: 20100709
  Transmission Date: 20110219
  Serious: Yes (Death, Life-Threatening, Hospitalization, Disabling, Other)
  Sender: FDA-Public Use
  Company Number: PHHY2010US45126

PATIENT
  Age: 68 Year
  Sex: Female
  Weight: 85.714 kg

DRUGS (10)
  1. ZOLEDRONIC ACID [Suspect]
     Dosage: 4 MG, QMO
     Route: 042
     Dates: start: 20100421, end: 20100421
  2. REVLIMID [Suspect]
     Indication: MULTIPLE MYELOMA
     Dosage: 25 MG (DAILY 1-21 Q28D)
     Route: 048
     Dates: start: 20100428, end: 20100518
  3. VICODIN [Concomitant]
     Dosage: UNK
  4. DEXAMETHASONE ACETATE [Concomitant]
     Dosage: 40 MG, QW
     Dates: end: 20100517
  5. MULTI-VITAMINS [Concomitant]
  6. REZAMID [Concomitant]
     Dosage: 200 MG (DAY 1-21)
  7. CALCIUM [Concomitant]
  8. VITAMIN D [Concomitant]
  9. NOVOLOG [Concomitant]
  10. ENEMA [Concomitant]
     Indication: CONSTIPATION
     Dosage: UNK
     Dates: start: 20100602

REACTIONS (24)
  - ABDOMINAL DISTENSION [None]
  - ABDOMINAL TENDERNESS [None]
  - ACUTE HEPATIC FAILURE [None]
  - ANAEMIA [None]
  - ASTERIXIS [None]
  - BLOOD GLUCOSE INCREASED [None]
  - CHOLELITHIASIS [None]
  - COAGULOPATHY [None]
  - CONSTIPATION [None]
  - DEPRESSED LEVEL OF CONSCIOUSNESS [None]
  - HAEMATOCHEZIA [None]
  - HEPATIC CALCIFICATION [None]
  - HEPATIC ENCEPHALOPATHY [None]
  - HEPATOTOXICITY [None]
  - HYPOKALAEMIA [None]
  - JAUNDICE [None]
  - LOCALISED OEDEMA [None]
  - LOWER GASTROINTESTINAL HAEMORRHAGE [None]
  - MULTI-ORGAN FAILURE [None]
  - OCULAR ICTERUS [None]
  - PLATELET COUNT DECREASED [None]
  - PRESYNCOPE [None]
  - RENAL FAILURE ACUTE [None]
  - SYNCOPE [None]
